FAERS Safety Report 14702299 (Version 1)
Quarter: 2018Q2

REPORT INFORMATION
  Report Type: Report from Study
  Country: US (occurrence: US)
  Receive Date: 20180401
  Receipt Date: 20180401
  Transmission Date: 20180711
  Serious: Yes (Death, Other)
  Sender: FDA-Public Use
  Company Number: US-SHIRE-US201811763

PATIENT
  Sex: Male

DRUGS (1)
  1. PENTASA [Suspect]
     Active Substance: MESALAMINE
     Indication: PRODUCT USED FOR UNKNOWN INDICATION
     Dosage: UNK, 4X/DAY:QID
     Route: 048

REACTIONS (6)
  - Medication error [Unknown]
  - Drug ineffective [Unknown]
  - Overdose [Unknown]
  - Intentional product misuse [Unknown]
  - Death [Fatal]
  - Drug abuse [Unknown]
